FAERS Safety Report 4749753-3 (Version None)
Quarter: 2005Q3

REPORT INFORMATION
  Report Type: 
  Country: None (occurrence: None)
  Receive Date: 20050822
  Receipt Date: 20050808
  Transmission Date: 20060218
  Serious: No
  Sender: FDA-Public Use
  Company Number: PHEH2005US08850

PATIENT
  Age: 67 Year
  Sex: Male
  Weight: 97 kg

DRUGS (6)
  1. DIOVAN [Suspect]
     Indication: HYPERTENSION
     Dosage: 160MG, QD
     Route: 048
     Dates: start: 20050805
  2. LOTREL [Suspect]
     Indication: HYPERTENSION
     Dosage: 10/20MG, QD
     Route: 048
     Dates: start: 20040501
  3. TOPROL-XL [Concomitant]
  4. DIGITEK [Concomitant]
  5. LOVASTATIN [Concomitant]
  6. PLAVIX [Concomitant]

REACTIONS (1)
  - CARDIAC DISORDER [None]
